FAERS Safety Report 5489886-X (Version None)
Quarter: 2007Q4

REPORT INFORMATION
  Report Type: 
  Country: None (occurrence: None)
  Receive Date: 20071018
  Receipt Date: 20071015
  Transmission Date: 20080405
  Serious: Yes (Other)
  Sender: FDA-Public Use
  Company Number: JP-PFIZER INC-2007062399

PATIENT
  Age: 47 Year
  Sex: Female

DRUGS (5)
  1. IRINOTECAN HCL [Suspect]
     Indication: RECTAL CANCER
  2. IRINOTECAN HCL [Suspect]
  3. UFT [Concomitant]
     Indication: RECTAL CANCER
  4. LEUCOVORIN CALCIUM [Concomitant]
     Indication: RECTAL CANCER
  5. LEUCOVORIN CALCIUM [Concomitant]
     Dosage: DAILY DOSE:1125MG

REACTIONS (2)
  - ACUTE RESPIRATORY DISTRESS SYNDROME [None]
  - LEUKOPENIA [None]
